FAERS Safety Report 13134806 (Version 1)
Quarter: 2017Q1

REPORT INFORMATION
  Report Type: Spontaneous
  Country: US (occurrence: US)
  Receive Date: 20170120
  Receipt Date: 20170120
  Transmission Date: 20170428
  Serious: Yes (Other)
  Sender: FDA-Public Use
  Company Number: US-JUBILANT CADISTA PHARMACEUTICALS-2017JUB00009

PATIENT
  Age: 75 Year
  Sex: Female
  Weight: 58.5 kg

DRUGS (4)
  1. LAMOTRIGINE. [Suspect]
     Active Substance: LAMOTRIGINE
     Indication: COMPLEX PARTIAL SEIZURES
     Dosage: 25 MG, 1X/DAY
     Route: 048
     Dates: start: 201605
  2. SYNTHROID [Concomitant]
     Active Substance: LEVOTHYROXINE SODIUM
  3. BABY ASPIRIN (ST. JOSEPH^S) [Concomitant]
  4. LAMOTRIGINE. [Suspect]
     Active Substance: LAMOTRIGINE
     Dosage: 50 MG, 1X/DAY
     Route: 048
     Dates: start: 201605

REACTIONS (3)
  - Expired product administered [Unknown]
  - Seizure [Recovered/Resolved]
  - Drug effect incomplete [Recovered/Resolved]

NARRATIVE: CASE EVENT DATE: 201612
